FAERS Safety Report 7507946-6 (Version None)
Quarter: 2011Q2

REPORT INFORMATION
  Report Type: 
  Country: None (occurrence: None)
  Receive Date: 20110519
  Receipt Date: 20110513
  Transmission Date: 20111010
  Serious: Yes (Hospitalization)
  Sender: FDA-Public Use
  Company Number: ACY-11-04

PATIENT
  Age: 40 Year
  Sex: Male

DRUGS (8)
  1. FLUROMETHOLONE [Concomitant]
  2. SULFACETAMIDE/PREDNISOLONE [Concomitant]
  3. ACYCLOVIR [Suspect]
     Indication: NECROTISING RETINITIS
     Dosage: IV 15MG/KG 8 HOURLY
     Route: 042
  4. FOSCARNET [Concomitant]
  5. PREDNISOLONE [Concomitant]
  6. CYCLOPENTOLATE HCL [Concomitant]
  7. PREDNISONE [Concomitant]
  8. MOXIFLOXACIN [Concomitant]

REACTIONS (1)
  - NEPHROPATHY TOXIC [None]
